FAERS Safety Report 4576393-1 (Version None)
Quarter: 2005Q1

REPORT INFORMATION
  Report Type: 
  Country: None (occurrence: None)
  Receive Date: 20050207
  Receipt Date: 20050120
  Transmission Date: 20050727
  Serious: Yes (Hospitalization)
  Sender: FDA-Public Use
  Company Number: DSA_25676_2005

PATIENT
  Age: 90 Year
  Sex: Female

DRUGS (6)
  1. MONO-TILDIEM - SLOW RELEASE [Suspect]
     Indication: HYPERTENSION
     Dosage: 200 MG Q DAY PO
     Route: 048
     Dates: end: 20041117
  2. MONO-TILDIEM - SLOW RELEASE [Suspect]
     Indication: HYPERTENSION
     Dosage: 300 MG Q DAY PO
     Route: 048
     Dates: start: 20041118, end: 20041118
  3. MONO-TILDIEM - SLOW RELEASE [Suspect]
     Indication: HYPERTENSION
     Dosage: 200 MG Q DAY PO
     Route: 048
     Dates: start: 20041119
  4. HYPERIUM [Concomitant]
  5. APROVEL [Concomitant]
  6. LASIX [Concomitant]

REACTIONS (3)
  - BLOOD PRESSURE DECREASED [None]
  - DRUG INEFFECTIVE [None]
  - FATIGUE [None]
